FAERS Safety Report 7587492-4 (Version None)
Quarter: 2011Q3

REPORT INFORMATION
  Report Type: 
  Country: None (occurrence: None)
  Receive Date: 20110704
  Receipt Date: 20110620
  Transmission Date: 20111222
  Serious: Yes (Hospitalization)
  Sender: FDA-Public Use
  Company Number: GB-RANBAXY-2011R1-45650

PATIENT
  Age: 18 Year
  Sex: Female

DRUGS (1)
  1. AMOXICILLIN AND CLAVULANATE POTASSIUM [Suspect]
     Indication: SINUSITIS
     Dosage: 625 MG, TID
     Route: 048
     Dates: start: 20110521, end: 20110528

REACTIONS (2)
  - PRURITUS [None]
  - RASH MACULO-PAPULAR [None]
